FAERS Safety Report 9475518 (Version 2)
Quarter: 2013Q4

REPORT INFORMATION
  Report Type: Report from Study
  Country: JP (occurrence: JP)
  Receive Date: 20130826
  Receipt Date: 20131031
  Transmission Date: 20140711
  Serious: Yes (Hospitalization)
  Sender: FDA-Public Use
  Company Number: JP-BRISTOL-MYERS SQUIBB COMPANY-19201250

PATIENT
  Age: 71 Year
  Sex: Male

DRUGS (10)
  1. CARBOPLATIN [Suspect]
     Indication: NON-SMALL CELL LUNG CANCER
     Dosage: 03/APR/2013 - 07/JJN/2013?02/JUL/2013 -02/JUL/2013
     Route: 041
     Dates: start: 20130403
  2. PACLITAXEL [Suspect]
     Indication: NON-SMALL CELL LUNG CANCER
     Dosage: 03/APR/13 - 07/JUN/13?02/JUL/LL - 02/JTUL/13
     Route: 041
     Dates: start: 20130403
  3. LASIX [Suspect]
     Indication: HYPERTENSION
     Route: 048
     Dates: start: 20130502, end: 20130711
  4. RENIVACE [Concomitant]
     Indication: HYPERTENSION
     Route: 048
     Dates: start: 20130405
  5. RENIVACE [Concomitant]
     Indication: HYPERTENSION
     Route: 048
  6. GASTER D [Concomitant]
     Indication: DYSPEPSIA
     Route: 048
     Dates: start: 20130501, end: 20130708
  7. GASTER D [Concomitant]
     Indication: ABDOMINAL PAIN UPPER
     Route: 048
     Dates: start: 20130501, end: 20130708
  8. ADALAT-L [Concomitant]
     Indication: HYPERTENSION
     Route: 048
     Dates: start: 20130502, end: 20130711
  9. LYRICA [Concomitant]
     Indication: NEUROPATHY PERIPHERAL
     Route: 048
     Dates: start: 20130607
  10. HYALEIN [Concomitant]
     Indication: DRY EYE
     Route: 047
     Dates: start: 20130701

REACTIONS (1)
  - Gastric ulcer [Recovered/Resolved]
